FAERS Safety Report 13503160 (Version 2)
Quarter: 2017Q4

REPORT INFORMATION
  Report Type: Spontaneous
  Country: US (occurrence: US)
  Receive Date: 20170502
  Receipt Date: 20171129
  Transmission Date: 20180320
  Serious: No
  Sender: FDA-Public Use
  Company Number: US-LUNDBECK-DKLU2029617

PATIENT
  Sex: Female

DRUGS (4)
  1. NORTHERA [Suspect]
     Active Substance: DROXIDOPA
     Indication: PRODUCT USED FOR UNKNOWN INDICATION
     Dosage: SCHEDULE B AND TITRATING
     Route: 065
     Dates: start: 20170415
  2. NORTHERA [Suspect]
     Active Substance: DROXIDOPA
     Route: 065
  3. NORTHERA [Suspect]
     Active Substance: DROXIDOPA
     Route: 065
  4. NORTHERA [Suspect]
     Active Substance: DROXIDOPA
     Route: 065

REACTIONS (5)
  - Blood pressure decreased [Unknown]
  - Feeling abnormal [Unknown]
  - Vomiting [Unknown]
  - Back pain [Recovered/Resolved]
  - Abdominal pain upper [Unknown]
